FAERS Safety Report 8173776-8 (Version None)
Quarter: 2012Q1

REPORT INFORMATION
  Report Type: 
  Country: None (occurrence: None)
  Receive Date: 20120227
  Receipt Date: 20120130
  Transmission Date: 20120608
  Serious: Yes (Other)
  Sender: FDA-Public Use
  Company Number: 2012P1003764

PATIENT
  Age: 58 Year
  Sex: Female

DRUGS (2)
  1. ZIPRASIDONE HYDROCHLORIDE [Suspect]
     Indication: BIPOLAR DISORDER
     Dosage: 40 MG, BID, PO
     Route: 048
  2. SERTRALINE HYDROCHLORIDE [Suspect]
     Indication: DEPRESSION
     Dosage: 50MG, QD

REACTIONS (5)
  - PARKINSONISM [None]
  - RABBIT SYNDROME [None]
  - WITHDRAWAL SYNDROME [None]
  - CONDITION AGGRAVATED [None]
  - DEPRESSION [None]
